FAERS Safety Report 9443304 (Version 2)
Quarter: 2013Q3

REPORT INFORMATION
  Report Type: Spontaneous
  Country: US (occurrence: US)
  Receive Date: 20130806
  Receipt Date: 20130828
  Transmission Date: 20140515
  Serious: Yes (Disabling)
  Sender: FDA-Public Use
  Company Number: US-GLAXOSMITHKLINE-A1035555A

PATIENT
  Age: 32 Year
  Sex: Female

DRUGS (2)
  1. VENTOLIN [Suspect]
     Indication: ASTHMA
     Dosage: 1PUFF AS REQUIRED
     Route: 055
     Dates: start: 20120114
  2. NO CONCURRENT MEDICATION [Concomitant]

REACTIONS (2)
  - Chest discomfort [Recovered/Resolved]
  - Drug administration error [Recovered/Resolved]
